FAERS Safety Report 8696061 (Version 4)
Quarter: 2014Q2

REPORT INFORMATION
  Report Type: Spontaneous
  Country: US (occurrence: US)
  Receive Date: 20120801
  Receipt Date: 20140423
  Transmission Date: 20141212
  Serious: Yes (Hospitalization)
  Sender: FDA-Public Use
  Company Number: US-BIOGENIDEC-2012BI027029

PATIENT
  Age: 42 Year
  Sex: Male
  Weight: 60 kg

DRUGS (6)
  1. AVONEX [Suspect]
     Indication: RELAPSING-REMITTING MULTIPLE SCLEROSIS
     Route: 030
     Dates: start: 20020428
  2. AVONEX [Suspect]
     Indication: RELAPSING-REMITTING MULTIPLE SCLEROSIS
     Route: 030
     Dates: end: 20120612
  3. AVONEX [Suspect]
     Indication: RELAPSING-REMITTING MULTIPLE SCLEROSIS
     Route: 030
     Dates: start: 20120708, end: 20140328
  4. VICODIN [Concomitant]
     Route: 048
  5. MOTRIN [Concomitant]
     Route: 048
  6. AMBIEN [Concomitant]
     Route: 048

REACTIONS (8)
  - Injection site abscess [Recovered/Resolved with Sequelae]
  - Memory impairment [Unknown]
  - Cognitive disorder [Unknown]
  - Optic neuropathy [Unknown]
  - Neck injury [Unknown]
  - Injection site haematoma [Recovered/Resolved]
  - Headache [Unknown]
  - Insomnia [Unknown]
